FAERS Safety Report 13944148 (Version 1)
Quarter: 2017Q3

REPORT INFORMATION
  Report Type: Spontaneous
  Country: FR (occurrence: FR)
  Receive Date: 20170907
  Receipt Date: 20170907
  Transmission Date: 20171128
  Serious: Yes (Other)
  Sender: FDA-Public Use
  Company Number: FR-009507513-1706FRA007768

PATIENT
  Age: 21 Year
  Sex: Female
  Weight: 64 kg

DRUGS (1)
  1. NEXPLANON [Suspect]
     Active Substance: ETONOGESTREL
     Dosage: 68 MG, UNK
     Route: 059
     Dates: start: 20140924, end: 20170620

REACTIONS (8)
  - Peripheral nerve decompression [Recovered/Resolved with Sequelae]
  - General anaesthesia [Recovered/Resolved with Sequelae]
  - Device deployment issue [Recovered/Resolved with Sequelae]
  - Nerve injury [Recovered/Resolved with Sequelae]
  - Wound dehiscence [Recovered/Resolved with Sequelae]
  - Motor dysfunction [Recovered/Resolved with Sequelae]
  - Device difficult to use [Recovered/Resolved with Sequelae]
  - Superinfection [Recovered/Resolved with Sequelae]

NARRATIVE: CASE EVENT DATE: 20140924
